FAERS Safety Report 5533981-3 (Version None)
Quarter: 2007Q4

REPORT INFORMATION
  Report Type: 
  Country: None (occurrence: None)
  Receive Date: 20071130
  Receipt Date: 20071120
  Transmission Date: 20080405
  Serious: Yes (Hospitalization)
  Sender: FDA-Public Use
  Company Number: 2007BI003522

PATIENT
  Age: 53 Year
  Sex: Male

DRUGS (9)
  1. NATALIZUMAB [Suspect]
     Indication: MULTIPLE SCLEROSIS
     Dosage: 300 MG;QM;IV; 300 MG;QM;IV
     Route: 042
     Dates: start: 20050127, end: 20050101
  2. NATALIZUMAB [Suspect]
     Indication: MULTIPLE SCLEROSIS
     Dosage: 300 MG;QM;IV; 300 MG;QM;IV
     Route: 042
     Dates: start: 20061206, end: 20070131
  3. BACLOFEN [Concomitant]
  4. HYOSCYAMINE [Concomitant]
  5. AVODART [Concomitant]
  6. UROXATRAL [Concomitant]
  7. PREDNISONE [Concomitant]
  8. TIZANIDINE HCL [Concomitant]
  9. LEXAPRO [Concomitant]

REACTIONS (13)
  - COGNITIVE DISORDER [None]
  - CUSHINGOID [None]
  - DISEASE PROGRESSION [None]
  - EPISTAXIS [None]
  - FEELING COLD [None]
  - HYPOAESTHESIA [None]
  - MULTIPLE SCLEROSIS [None]
  - MUSCULAR WEAKNESS [None]
  - PETECHIAE [None]
  - RASH [None]
  - THROMBOCYTOPENIA [None]
  - URINARY TRACT DISORDER [None]
  - WEIGHT INCREASED [None]
